FAERS Safety Report 23716644 (Version 1)
Quarter: 2024Q2

REPORT INFORMATION
  Report Type: Report from Study
  Country: US (occurrence: US)
  Receive Date: 20240408
  Receipt Date: 20240408
  Transmission Date: 20240716
  Serious: Yes (Hospitalization, Other)
  Sender: FDA-Public Use
  Company Number: US-AUROBINDO-AUR-APL-2024-015244

PATIENT

DRUGS (1)
  1. BIVALIRUDIN [Suspect]
     Active Substance: BIVALIRUDIN
     Indication: Anticoagulant therapy
     Dosage: RANGED BETWEEN 0.05-0.1 MG/KG/H AND STABLE DOSAGES WERE BETWEEN 0.15-0.22 MG/KG/H.
     Route: 065

REACTIONS (2)
  - Pulmonary artery thrombosis [Unknown]
  - Drug ineffective [Unknown]
